FAERS Safety Report 17773054 (Version 1)
Quarter: 2020Q2

REPORT INFORMATION
  Report Type: Spontaneous
  Country: US (occurrence: US)
  Receive Date: 20200512
  Receipt Date: 20200512
  Transmission Date: 20200714
  Serious: Yes (Hospitalization)
  Sender: FDA-Public Use
  Company Number: US-TEVA-2020-US-1233407

PATIENT
  Age: 82 Year
  Sex: Female

DRUGS (1)
  1. BACLOFEN TEVA [Suspect]
     Active Substance: BACLOFEN
     Indication: BACK PAIN
     Route: 065
     Dates: start: 2017, end: 20190914

REACTIONS (7)
  - Fall [Recovered/Resolved]
  - Muscular weakness [Recovered/Resolved]
  - Grip strength decreased [Recovered/Resolved]
  - Contusion [Recovered/Resolved]
  - Rib fracture [Recovered/Resolved]
  - Hand fracture [Recovered/Resolved]
  - Hip fracture [Recovered/Resolved with Sequelae]

NARRATIVE: CASE EVENT DATE: 201909
